FAERS Safety Report 5675740-7 (Version None)
Quarter: 2008Q1

REPORT INFORMATION
  Report Type: 
  Country: None (occurrence: None)
  Receive Date: 20080321
  Receipt Date: 20080311
  Transmission Date: 20080703
  Serious: Yes (Other)
  Sender: FDA-Public Use
  Company Number: PHMT2008CA00585

PATIENT
  Sex: Female

DRUGS (8)
  1. CLOZARIL [Suspect]
     Indication: SCHIZOPHRENIA
     Route: 064
  2. BUPROPION HCL [Concomitant]
  3. ESCITALOPRAM OXALATE [Concomitant]
     Route: 064
  4. OXYTOCIN [Concomitant]
     Route: 064
  5. RANITIDINE HCL [Concomitant]
     Route: 064
  6. MORPHINE [Concomitant]
     Route: 064
  7. GRAVOL TAB [Concomitant]
     Route: 064
  8. FENTANYL [Concomitant]
     Route: 064

REACTIONS (9)
  - ABDOMINAL DISTENSION [None]
  - ABDOMINAL PAIN UPPER [None]
  - DRUG EXPOSURE DURING PREGNANCY [None]
  - FOETAL MOVEMENTS DECREASED [None]
  - HYPOTONIA NEONATAL [None]
  - INFREQUENT BOWEL MOVEMENTS [None]
  - INTESTINAL OBSTRUCTION [None]
  - INTESTINAL STENOSIS [None]
  - MECONIUM PLUG SYNDROME [None]
